FAERS Safety Report 4634565-1 (Version None)
Quarter: 2005Q2

REPORT INFORMATION
  Report Type: 
  Country: None (occurrence: None)
  Receive Date: 20050411
  Receipt Date: 20050404
  Transmission Date: 20051028
  Serious: Yes (Disabling)
  Sender: FDA-Public Use
  Company Number: 2004-06-1139

PATIENT
  Age: 58 Year
  Sex: Male
  Weight: 89 kg

DRUGS (2)
  1. INTRON A [Suspect]
     Indication: MALIGNANT MELANOMA
     Dates: start: 20040225
  2. PARACETAMOL [Concomitant]

REACTIONS (2)
  - MYALGIA [None]
  - SCIATICA [None]
